FAERS Safety Report 4643431-7 (Version None)
Quarter: 2005Q2

REPORT INFORMATION
  Report Type: 
  Country: None (occurrence: None)
  Receive Date: 20050420
  Receipt Date: 20050420
  Transmission Date: 20051028
  Serious: Yes (Hospitalization)
  Sender: FDA-Public Use
  Company Number: None

PATIENT
  Age: 69 Year
  Sex: Male
  Weight: 67.1324 kg

DRUGS (1)
  1. GEMCITABINE [Suspect]
     Indication: PANCREATIC CARCINOMA
     Dosage: 600 MG/M2, WEEKLY, IV
     Route: 042
     Dates: start: 20050307, end: 20050411

REACTIONS (7)
  - ANOREXIA [None]
  - DEHYDRATION [None]
  - DIARRHOEA [None]
  - NAUSEA [None]
  - NEUTROPENIA [None]
  - ORAL INTAKE REDUCED [None]
  - VOMITING [None]
